FAERS Safety Report 4276704-0 (Version None)
Quarter: 2004Q1

REPORT INFORMATION
  Report Type: 
  Country: None (occurrence: None)
  Receive Date: 20040120
  Receipt Date: 20040113
  Transmission Date: 20041129
  Serious: Yes (Death)
  Sender: FDA-Public Use
  Company Number: 2004194247BR

PATIENT
  Age: 40 Year
  Sex: Female
  Weight: 76 kg

DRUGS (8)
  1. CELECOXIB VS PLACEBO (CODE NOT BROKEN) CAPSULE [Suspect]
     Indication: SCHIZOPHRENIA
     Dosage: BID, ORAL
     Route: 048
     Dates: start: 20021009
  2. COMPARATOR-RISPERIDONE (RISPERIDONE) TABLET [Suspect]
     Indication: SCHIZOPHRENIA
     Dosage: 2 MG, BID
     Dates: start: 20030925
  3. LEVOMEPROMAZINE [Concomitant]
  4. CAPTOPRIL [Suspect]
  5. BIPERIDEN HYDROCHLORIDE TAB [Suspect]
  6. ZOPICLONE [Concomitant]
  7. HYDROCHLOROTHIAZIDE [Concomitant]
  8. PROPRANOLOL [Concomitant]

REACTIONS (2)
  - COMPLETED SUICIDE [None]
  - INTENTIONAL OVERDOSE [None]
